FAERS Safety Report 4599437-X (Version None)
Quarter: 2005Q1

REPORT INFORMATION
  Report Type: 
  Country: None (occurrence: None)
  Receive Date: 20050307
  Receipt Date: 20050224
  Transmission Date: 20050727
  Serious: Yes (Disabling)
  Sender: FDA-Public Use
  Company Number: 200511684GDDC

PATIENT
  Age: 68 Year
  Sex: Female
  Weight: 45 kg

DRUGS (6)
  1. ARAVA [Suspect]
     Indication: RHEUMATOID ARTHRITIS
     Route: 048
     Dates: start: 20010807, end: 20050112
  2. CELECOXIB [Concomitant]
     Route: 048
  3. ASPIRIN [Concomitant]
     Route: 048
  4. CALCICHEW D3 [Concomitant]
     Route: 048
  5. PIRITON [Concomitant]
     Route: 048
  6. CO-CODAMOL [Concomitant]
     Dosage: DOSE: 8/500
     Route: 048

REACTIONS (1)
  - DEMYELINATING POLYNEUROPATHY [None]
